FAERS Safety Report 23172229 (Version 1)
Quarter: 2023Q4

REPORT INFORMATION
  Report Type: Spontaneous
  Country: TR (occurrence: TR)
  Receive Date: 20231110
  Receipt Date: 20231110
  Transmission Date: 20240109
  Serious: Yes (Other)
  Sender: FDA-Public Use
  Company Number: TR-SUN PHARMACEUTICAL INDUSTRIES LTD-2023R1-416860

PATIENT
  Age: 70 Year
  Sex: Male

DRUGS (1)
  1. ALENDRONATE [Suspect]
     Active Substance: ALENDRONATE SODIUM
     Indication: Osteoporosis
     Dosage: UNK, WEEKLY
     Route: 048

REACTIONS (5)
  - Gastrooesophageal reflux disease [Unknown]
  - Mucosal ulceration [Recovered/Resolved]
  - Product use issue [Unknown]
  - Ulcer haemorrhage [Recovered/Resolved]
  - Oral pain [Unknown]
